FAERS Safety Report 11860645 (Version 1)
Quarter: 2015Q4

REPORT INFORMATION
  Report Type: Report from Study
  Country: JP (occurrence: JP)
  Receive Date: 20151222
  Receipt Date: 20151222
  Transmission Date: 20160305
  Serious: Yes (Death)
  Sender: FDA-Public Use
  Company Number: JP-009507513-1512JPN011286

PATIENT
  Age: 79 Year
  Sex: Female

DRUGS (10)
  1. BUFFERIN [Concomitant]
     Active Substance: ASPIRIN
     Dosage: UNK
  2. URITOS [Concomitant]
     Active Substance: IMIDAFENACIN
  3. GLACTIV [Suspect]
     Active Substance: SITAGLIPTIN
     Indication: TYPE 2 DIABETES MELLITUS
     Dosage: 25 MG, QD AFTER BREAKFAST
     Route: 048
     Dates: start: 20110627, end: 20130729
  4. ZYLORIC [Concomitant]
     Active Substance: ALLOPURINOL
  5. BAYASPIRIN [Concomitant]
     Active Substance: ASPIRIN
  6. GLIMICRON [Concomitant]
     Active Substance: GLICLAZIDE
  7. EBRANTIL [Concomitant]
     Active Substance: URAPIDIL
  8. NITOROL-R [Concomitant]
  9. ULCERLMIN [Concomitant]
     Active Substance: SUCRALFATE
  10. LOCHOL (FLUVASTATIN SODIUM) [Concomitant]
     Active Substance: FLUVASTATIN SODIUM

REACTIONS (1)
  - Duodenal ulcer [Fatal]

NARRATIVE: CASE EVENT DATE: 20130727
